FAERS Safety Report 9257490 (Version 1)
Quarter: 2013Q1

REPORT INFORMATION
  Report Type: Spontaneous
  Country: US (occurrence: None)
  Receive Date: 20121212
  Receipt Date: 20121212
  Transmission Date: 20140127
  Serious: No
  Sender: FDA-Public Use
  Company Number: 1209USA005926

PATIENT
  Sex: Female
  Weight: 94.8 kg

DRUGS (3)
  1. VICTRELIS [Suspect]
     Route: 048
  2. REBETOL [Suspect]
  3. PEGASYS [Suspect]

REACTIONS (6)
  - Haematocrit decreased [None]
  - Haemoglobin decreased [None]
  - Fatigue [None]
  - Asthenia [None]
  - Alopecia [None]
  - Fatigue [None]
